FAERS Safety Report 9836480 (Version 2)
Quarter: 2014Q1

REPORT INFORMATION
  Report Type: Spontaneous
  Country: CA (occurrence: CA)
  Receive Date: 20140123
  Receipt Date: 20140228
  Transmission Date: 20141002
  Serious: Yes (Other)
  Sender: FDA-Public Use
  Company Number: CA-ROCHE-1336405

PATIENT
  Age: 48 Year
  Sex: Male

DRUGS (6)
  1. XOLAIR [Suspect]
     Indication: ASTHMA
     Route: 058
     Dates: start: 20131021
  2. XOLAIR [Suspect]
     Route: 065
     Dates: start: 20131118
  3. XOLAIR [Suspect]
     Route: 065
     Dates: start: 20140102
  4. XOLAIR [Suspect]
     Route: 065
     Dates: start: 20140130
  5. TECTA [Concomitant]
     Route: 065
  6. CETRIZINE [Concomitant]
     Route: 065

REACTIONS (9)
  - Pharyngeal oedema [Unknown]
  - General physical health deterioration [Unknown]
  - Hot flush [Unknown]
  - Oral discomfort [Unknown]
  - Lip swelling [Unknown]
  - Skin exfoliation [Unknown]
  - Eye pruritus [Unknown]
  - Alopecia [Not Recovered/Not Resolved]
  - Dry skin [Not Recovered/Not Resolved]
